FAERS Safety Report 9219587 (Version 2)
Quarter: 2013Q2

REPORT INFORMATION
  Report Type: Report from Study
  Country: CA (occurrence: CA)
  Receive Date: 20130409
  Receipt Date: 20130412
  Transmission Date: 20140414
  Serious: Yes (Other)
  Sender: FDA-Public Use
  Company Number: CA-ROCHE-1157142

PATIENT
  Age: 62 Year
  Sex: Male
  Weight: 79 kg

DRUGS (7)
  1. ACTEMRA [Suspect]
     Indication: RHEUMATOID ARTHRITIS
     Route: 042
     Dates: start: 20100809
  2. ACTEMRA [Suspect]
     Route: 042
     Dates: start: 20110210
  3. PLENDIL [Concomitant]
     Indication: BLOOD PRESSURE
  4. VITAMIN B12 [Concomitant]
     Route: 048
  5. TYLENOL [Concomitant]
     Route: 065
  6. COVERSYL [Concomitant]
  7. PREDNISONE [Concomitant]

REACTIONS (4)
  - Retinal detachment [Recovered/Resolved]
  - Heart rate irregular [Not Recovered/Not Resolved]
  - Lower respiratory tract infection [Recovered/Resolved]
  - Influenza [Recovered/Resolved]
